FAERS Safety Report 8828787 (Version 2)
Quarter: 2013Q2

REPORT INFORMATION
  Report Type: Spontaneous
  Country: US (occurrence: US)
  Receive Date: 20121008
  Receipt Date: 20130401
  Transmission Date: 20140414
  Serious: Yes (Death, Other)
  Sender: FDA-Public Use
  Company Number: US-ASTRAZENECA-2012SE75730

PATIENT
  Age: 78 Year
  Sex: Male

DRUGS (1)
  1. CRESTOR [Suspect]
     Route: 048

REACTIONS (2)
  - Brain neoplasm [Fatal]
  - Lung neoplasm malignant [Fatal]
